FAERS Safety Report 17076191 (Version 1)
Quarter: 2019Q4

REPORT INFORMATION
  Report Type: Spontaneous
  Country: US (occurrence: US)
  Receive Date: 20191126
  Receipt Date: 20191126
  Transmission Date: 20200122
  Serious: Yes (Hospitalization)
  Sender: FDA-Public Use
  Company Number: US-ELI_LILLY_AND_COMPANY-US201911008516

PATIENT
  Age: 52 Year
  Sex: Male

DRUGS (1)
  1. BASAGLAR [Suspect]
     Active Substance: INSULIN GLARGINE
     Indication: DIABETES MELLITUS
     Dosage: 20 U, EACH EVENING
     Route: 058
     Dates: start: 201910

REACTIONS (4)
  - Blood glucose increased [Recovering/Resolving]
  - Mobility decreased [Unknown]
  - Skin ulcer [Recovering/Resolving]
  - Blood blister [Recovering/Resolving]

NARRATIVE: CASE EVENT DATE: 201910
